FAERS Safety Report 6707589-8 (Version None)
Quarter: 2010Q2

REPORT INFORMATION
  Report Type: 
  Country: None (occurrence: None)
  Receive Date: 20100429
  Receipt Date: 20100419
  Transmission Date: 20101027
  Serious: Yes (Hospitalization)
  Sender: FDA-Public Use
  Company Number: B0648923A

PATIENT
  Age: 21 Year
  Sex: Female

DRUGS (6)
  1. HYCAMTIN [Suspect]
     Indication: ACUTE MYELOID LEUKAEMIA
     Dosage: INTRAVENOUS
     Route: 042
  2. VINORELBINE TARTRATE [Suspect]
     Indication: ACUTE MYELOID LEUKAEMIA
     Dosage: 20 MG/M2 / WEEKLY / INTRAVENOUS
     Route: 042
  3. GRANULOCYTE COL.STIM.FACT [Concomitant]
  4. THIOTEPA [Suspect]
     Indication: ACUTE MYELOID LEUKAEMIA
     Dosage: 15 MG/M2/INTRAVENOUS INFUSION
     Route: 042
  5. DEXAMETHASONE [Suspect]
     Indication: ACUTE MYELOID LEUKAEMIA
     Dosage: 45MG/M2
  6. CLOFARABINE (FORMULATION UNKNOWN) (CLOFARABINE) [Suspect]
     Indication: ACUTE MYELOID LEUKAEMIA
     Dosage: INTRAVENOUS INFUSION

REACTIONS (7)
  - BLOOD AMYLASE INCREASED [None]
  - BONE MARROW FAILURE [None]
  - BONE MARROW TRANSPLANT [None]
  - HYPOTENSION [None]
  - LEUKAEMIA RECURRENT [None]
  - LIPASE INCREASED [None]
  - UNEVALUABLE EVENT [None]
